FAERS Safety Report 22911716 (Version 2)
Quarter: 2024Q2

REPORT INFORMATION
  Report Type: Report from Study
  Country: DE (occurrence: DE)
  Receive Date: 20230906
  Receipt Date: 20240410
  Transmission Date: 20240716
  Serious: Yes (Other)
  Sender: FDA-Public Use
  Company Number: DE-JNJFOC-20230814728

PATIENT
  Age: 12 Year
  Sex: Male
  Weight: 52 kg

DRUGS (2)
  1. METHOTREXATE [Suspect]
     Active Substance: METHOTREXATE
     Indication: Juvenile idiopathic arthritis
     Dosage: 10 MILLIGRAM,QW
     Route: 065
  2. SIMPONI [Suspect]
     Active Substance: GOLIMUMAB
     Indication: Juvenile idiopathic arthritis
     Dosage: 50 MILLIGRAM,MONTHLY,(IN PRE-FILLED PEN, 4 WEEKS)
     Route: 058
     Dates: start: 20220901, end: 20240301

REACTIONS (2)
  - Juvenile idiopathic arthritis [Recovered/Resolved]
  - Drug ineffective [Unknown]

NARRATIVE: CASE EVENT DATE: 20230101
